FAERS Safety Report 5155029-5 (Version None)
Quarter: 2006Q4

REPORT INFORMATION
  Report Type: 
  Country: None (occurrence: None)
  Receive Date: 20061120
  Receipt Date: 20061120
  Transmission Date: 20070319
  Serious: No
  Sender: FDA-Public Use
  Company Number: None

PATIENT
  Sex: Female

DRUGS (1)
  1. CERVIDIL [Suspect]
     Indication: LABOUR INDUCTION
     Dosage: STANDARD X1 VAGINAL INSERT
     Dates: start: 20060530

REACTIONS (1)
  - PHARMACEUTICAL PRODUCT COMPLAINT [None]
